FAERS Safety Report 12268882 (Version 5)
Quarter: 2016Q2

REPORT INFORMATION
  Report Type: Spontaneous
  Country: GB (occurrence: GB)
  Receive Date: 20160414
  Receipt Date: 20160530
  Transmission Date: 20160815
  Serious: Yes (Hospitalization, Other)
  Sender: FDA-Public Use
  Company Number: GB-PFIZER INC-2016124988

PATIENT
  Age: 54 Year
  Sex: Female

DRUGS (44)
  1. HERCEPTIN [Suspect]
     Active Substance: TRASTUZUMAB
     Dosage: MAINTENANCE DOSE: 6 MG/KG (441 MG)
     Route: 042
  2. HERCEPTIN [Suspect]
     Active Substance: TRASTUZUMAB
     Dosage: 441 MG, MOST RECENT DOSE PRIOR TO CHEST INFECTION AND PYREXIA
     Route: 042
     Dates: start: 20160115
  3. CLARITHROMYCIN. [Concomitant]
     Active Substance: CLARITHROMYCIN
     Dosage: 500 MG, UNK
     Route: 048
     Dates: start: 20160208, end: 20160211
  4. VITAMIN D3 [Concomitant]
     Active Substance: CHOLECALCIFEROL
     Dosage: UNK
     Route: 065
     Dates: start: 20160208, end: 20160211
  5. DOCETAXEL. [Suspect]
     Active Substance: DOCETAXEL
     Dosage: 75 MG, EVERY 21 DAYS
     Route: 042
     Dates: start: 20140221
  6. PERTUZUMAB [Suspect]
     Active Substance: PERTUZUMAB
     Dosage: 420 MG, LAST DOSE PRIOR TO SAE (PNEUMONIA)
     Route: 042
     Dates: start: 20151218
  7. PERTUZUMAB [Suspect]
     Active Substance: PERTUZUMAB
     Dosage: 420 MG, WEEKLY, THERAPY RESTARTED
     Dates: start: 20160317, end: 20160317
  8. COCODAMOL [Concomitant]
     Active Substance: ACETAMINOPHEN\CODEINE PHOSPHATE
     Dosage: 2 DF, UNK
     Route: 065
     Dates: start: 20140423
  9. CORSODYL [Concomitant]
     Active Substance: CHLORHEXIDINE GLUCONATE
     Dosage: UNK
     Dates: start: 20140402
  10. CYCLIZINE [Concomitant]
     Active Substance: CYCLIZINE
     Dosage: UNK
     Route: 065
     Dates: start: 20151105, end: 20151123
  11. DEXAMETHASONE. [Concomitant]
     Active Substance: DEXAMETHASONE
     Indication: PROPHYLAXIS
     Dosage: DOSE: 16 M
     Route: 065
     Dates: start: 20131016
  12. NORTRIPTYLINE [Concomitant]
     Active Substance: NORTRIPTYLINE
     Dosage: 20 MG, UNK
     Route: 065
     Dates: start: 20160208, end: 20160210
  13. DALTEPARIN [Concomitant]
     Active Substance: DALTEPARIN
     Dosage: 5000 UL, UNK
     Dates: start: 20160208, end: 20160210
  14. HERCEPTIN [Suspect]
     Active Substance: TRASTUZUMAB
     Indication: HER-2 POSITIVE BREAST CANCER
     Dosage: 8 MG/KG, UNK LOADING DOSE
     Route: 042
     Dates: start: 20131017
  15. HERCEPTIN [Suspect]
     Active Substance: TRASTUZUMAB
     Dosage: 441 MG, LAST DOSE PRIOR TO SAE (PNEUMONIA)
     Route: 042
     Dates: start: 20151218
  16. DEXAMETHASONE. [Concomitant]
     Active Substance: DEXAMETHASONE
     Dosage: 2 MG, UNK
     Route: 065
     Dates: start: 20160204, end: 20160218
  17. TIMODINE /00446501/ [Concomitant]
     Dosage: UNK
     Dates: start: 20150408, end: 20150506
  18. DOCETAXEL. [Suspect]
     Active Substance: DOCETAXEL
     Indication: HER-2 POSITIVE BREAST CANCER
     Dosage: 140 MG, CYCLIC EVERY 21 DAYS
     Route: 042
     Dates: start: 20131018
  19. HERCEPTIN [Suspect]
     Active Substance: TRASTUZUMAB
     Dosage: UNK
     Dates: start: 20160317
  20. DIAZEPAM. [Concomitant]
     Active Substance: DIAZEPAM
     Indication: PROPHYLAXIS
     Dosage: UNK
     Route: 065
     Dates: start: 20160111
  21. LANSOPRAZOLE. [Concomitant]
     Active Substance: LANSOPRAZOLE
     Dosage: UNK
     Route: 065
     Dates: start: 20131127
  22. PERTUZUMAB [Suspect]
     Active Substance: PERTUZUMAB
     Indication: HER-2 POSITIVE BREAST CANCER
     Dosage: 420 MG, EVERY 3 WEEKS (MAINTENACE DOSE)
     Route: 042
  23. PERTUZUMAB [Suspect]
     Active Substance: PERTUZUMAB
     Dosage: 840 MG, UNK LOADING DOSE
     Route: 042
     Dates: start: 20131017
  24. DERMOVATE [Concomitant]
     Active Substance: CLOBETASOL
     Dosage: UNK
     Route: 065
     Dates: start: 20151021
  25. HYDROCORTISONE. [Concomitant]
     Active Substance: HYDROCORTISONE
     Dosage: UNK
     Route: 065
     Dates: start: 20150731
  26. MILK THISTLE [Concomitant]
     Active Substance: MILK THISTLE
     Dosage: 3 MG, UNK
     Route: 065
     Dates: start: 20160209, end: 20160211
  27. MIRTAZAPINE. [Concomitant]
     Active Substance: MIRTAZAPINE
     Dosage: 30 MG, UNK
     Route: 065
     Dates: start: 20160208, end: 20160210
  28. PERINDOPRIL [Concomitant]
     Active Substance: PERINDOPRIL
     Dosage: 2 MG, UNK
  29. AMOXYCILLIN [Concomitant]
     Active Substance: AMOXICILLIN
     Dosage: 500 MG, EVERY 8 HOURS
     Route: 065
     Dates: start: 20160102, end: 20160108
  30. COCODAMOL [Concomitant]
     Active Substance: ACETAMINOPHEN\CODEINE PHOSPHATE
     Dosage: 36/1000
     Route: 065
     Dates: start: 20160208, end: 20160208
  31. LAXIDO [Concomitant]
     Active Substance: POLYETHYLENE GLYCOL 3350\POTASSIUM CHLORIDE\SODIUM BICARBONATE\SODIUM CHLORIDE
     Dosage: DOSE: 1-3 SACHETS
     Route: 065
     Dates: start: 201502, end: 20150703
  32. NORTRIPTYLINE [Concomitant]
     Active Substance: NORTRIPTYLINE
     Dosage: UNK
     Route: 065
     Dates: start: 20140826
  33. AMOXYCILLIN [Concomitant]
     Active Substance: AMOXICILLIN
     Dosage: 500 MG, EVERY 8 HOURS
     Route: 065
     Dates: start: 20140402, end: 20140409
  34. CLARITHROMYCIN. [Concomitant]
     Active Substance: CLARITHROMYCIN
     Indication: PROPHYLAXIS
     Dosage: 500 MG, UNK
     Route: 048
     Dates: start: 20160102, end: 20160108
  35. CYCLIZINE [Concomitant]
     Active Substance: CYCLIZINE
     Dosage: 50 MG, UNK
     Route: 065
     Dates: start: 20160204, end: 20160218
  36. LANSOPRAZOLE. [Concomitant]
     Active Substance: LANSOPRAZOLE
     Dosage: 30 MG, UNK
     Route: 065
     Dates: start: 20160209, end: 20160211
  37. MIRTAZAPINE. [Concomitant]
     Active Substance: MIRTAZAPINE
     Dosage: 30 MG, UNK
     Route: 065
     Dates: start: 199806
  38. VITAMIN C [Concomitant]
     Active Substance: ASCORBIC ACID
     Dosage: 1 G, UNK
     Route: 065
     Dates: start: 20160209, end: 20160211
  39. ANUSOL-HC /00268601/ [Concomitant]
     Dosage: UNK
     Dates: start: 20150408, end: 20150506
  40. PERTUZUMAB [Suspect]
     Active Substance: PERTUZUMAB
     Dosage: 420 MG,  MOST RECENT DOSE PRIOR TO CHEST INFECTION AND PYREXIA
     Route: 042
     Dates: start: 20160105, end: 20160226
  41. DEXAMETHASONE. [Concomitant]
     Active Substance: DEXAMETHASONE
     Dosage: DOE: 0.5-10 MICROGRAMS
     Dates: start: 20151123
  42. NORTRIPTYLINE [Concomitant]
     Active Substance: NORTRIPTYLINE
     Dosage: UNK
     Route: 065
     Dates: start: 20140625, end: 20140826
  43. NEULASTA [Concomitant]
     Active Substance: PEGFILGRASTIM
     Indication: PROPHYLAXIS
     Dosage: UNK
     Route: 065
     Dates: start: 20131018
  44. CALCICHEW D3 FORTE [Concomitant]
     Active Substance: CALCIUM\CHOLECALCIFEROL
     Dosage: 500 MG, UNK
     Route: 065
     Dates: start: 20160209

REACTIONS (2)
  - Pneumonia [Recovering/Resolving]
  - Lower respiratory tract infection [Recovering/Resolving]

NARRATIVE: CASE EVENT DATE: 20160102
